FAERS Safety Report 10009820 (Version 2)
Quarter: 2014Q1

REPORT INFORMATION
  Report Type: Spontaneous
  Country: US (occurrence: US)
  Receive Date: 20140312
  Receipt Date: 20140312
  Transmission Date: 20141002
  Serious: No
  Sender: FDA-Public Use
  Company Number: US-INCYTE CORPORATION-2013IN000042

PATIENT
  Age: 73 Year
  Sex: Male
  Weight: 71.5 kg

DRUGS (8)
  1. JAKAFI [Suspect]
     Indication: MYELOFIBROSIS
     Dosage: 20 MG, BID
     Route: 048
     Dates: start: 20111216
  2. LEVOXYL [Concomitant]
  3. AMLODIPINE [Concomitant]
  4. TERBINAFINE [Concomitant]
  5. MULTIVITAMINS [Concomitant]
  6. OMEGA 3 FISH OIL [Concomitant]
  7. VITAMIN C [Concomitant]
  8. NIACIN [Concomitant]

REACTIONS (1)
  - White blood cell count increased [Not Recovered/Not Resolved]
